FAERS Safety Report 7195383-6 (Version None)
Quarter: 2010Q4

REPORT INFORMATION
  Report Type: 
  Country: None (occurrence: None)
  Receive Date: 20101223
  Receipt Date: 20101001
  Transmission Date: 20110411
  Serious: Yes (Other)
  Sender: FDA-Public Use
  Company Number: US-AMGEN-KDL442492

PATIENT

DRUGS (4)
  1. ENBREL [Suspect]
     Indication: RHEUMATOID ARTHRITIS
     Dosage: 50 MG, QWK
     Route: 058
     Dates: start: 20080825, end: 20100829
  2. ANTIBIOTICS [Concomitant]
  3. CEFTRIAXONE SODIUM [Concomitant]
     Dosage: 1 MG, QD
  4. METHOTREXATE [Concomitant]

REACTIONS (3)
  - LOCALISED INFECTION [None]
  - RHEUMATOID NODULE [None]
  - STAPHYLOCOCCAL OSTEOMYELITIS [None]
